FAERS Safety Report 20168573 (Version 4)
Quarter: 2022Q1

REPORT INFORMATION
  Report Type: Spontaneous
  Country: US (occurrence: US)
  Receive Date: 20211210
  Receipt Date: 20220127
  Transmission Date: 20220423
  Serious: No
  Sender: FDA-Public Use
  Company Number: US-AMGEN-USASP2021194179

PATIENT
  Age: 45 Year
  Sex: Male

DRUGS (11)
  1. OTEZLA [Suspect]
     Active Substance: APREMILAST
     Indication: Psoriasis
     Dosage: 30 MILLIGRAM, QD
     Route: 048
     Dates: start: 202112
  2. TACLONEX [Concomitant]
     Active Substance: BETAMETHASONE DIPROPIONATE\CALCIPOTRIENE\CALCIPOTRIENE HYDRATE
  3. TRIAMCINOLON [TRIAMCINOLONE ACETONIDE] [Concomitant]
  4. CALCIPOTRIENE AND BETAMETHASONE DIPROPIONATE [Concomitant]
     Active Substance: BETAMETHASONE DIPROPIONATE\CALCIPOTRIENE
  5. ALLOPURINOL [Concomitant]
     Active Substance: ALLOPURINOL
  6. ATORVASTATIN [Concomitant]
     Active Substance: ATORVASTATIN
  7. CARVEDILOL [Concomitant]
     Active Substance: CARVEDILOL
  8. MYCOPHENOLATE MOFETIL [Concomitant]
     Active Substance: MYCOPHENOLATE MOFETIL
  9. NIFEDIPINE [Concomitant]
     Active Substance: NIFEDIPINE
  10. PREDNISONE [Concomitant]
     Active Substance: PREDNISONE
  11. TACROLIMUS [Concomitant]
     Active Substance: TACROLIMUS

REACTIONS (2)
  - Skin papilloma [Unknown]
  - Keratosis pilaris [Unknown]
